FAERS Safety Report 26210483 (Version 1)
Quarter: 2025Q4

REPORT INFORMATION
  Report Type: Spontaneous
  Country: BR (occurrence: BR)
  Receive Date: 20251229
  Receipt Date: 20251229
  Transmission Date: 20260117
  Serious: Yes (Other)
  Sender: NOVO NORDISK
  Company Number: BR-NOVOPROD-1593543

PATIENT
  Age: 51 Year
  Sex: Female

DRUGS (5)
  1. WEGOVY [Suspect]
     Active Substance: SEMAGLUTIDE
     Indication: Product used for unknown indication
     Dosage: 8 CLICKS EACH
     Dates: start: 20250804
  2. WEGOVY [Suspect]
     Active Substance: SEMAGLUTIDE
     Dosage: DOSE WAS INCREASED TO 16 CLICKS
     Dates: start: 202509
  3. WEGOVY [Suspect]
     Active Substance: SEMAGLUTIDE
     Dosage: 31 CLICKS
  4. WEGOVY [Suspect]
     Active Substance: SEMAGLUTIDE
     Dosage: 16 CLICKS
     Dates: start: 20251031
  5. WEGOVY [Suspect]
     Active Substance: SEMAGLUTIDE
     Dosage: UNK,LAST DOSE BEFORE SURGERY
     Dates: start: 20250915

REACTIONS (2)
  - Hypoacusis [Unknown]
  - Off label use [Unknown]

NARRATIVE: CASE EVENT DATE: 20250101
